FAERS Safety Report 21247511 (Version 3)
Quarter: 2022Q4

REPORT INFORMATION
  Report Type: Report from Study
  Country: MX (occurrence: MX)
  Receive Date: 20220824
  Receipt Date: 20221004
  Transmission Date: 20230113
  Serious: Yes (Other)
  Sender: FDA-Public Use
  Company Number: MX-BAYER-2022A112711

PATIENT
  Age: 63 Year
  Sex: Female

DRUGS (3)
  1. NEXAVAR [Suspect]
     Active Substance: SORAFENIB
     Indication: Hepatocellular carcinoma
     Dosage: 400 MG, BID
     Dates: start: 20220713, end: 20220810
  2. NEXAVAR [Suspect]
     Active Substance: SORAFENIB
     Indication: Hepatocellular carcinoma
     Dosage: 200 MG, BID
     Dates: start: 20220923
  3. SPIRONOLACTONE [Concomitant]
     Active Substance: SPIRONOLACTONE
     Indication: Pulmonary oedema
     Dosage: 2 TABLETS DAILY
     Dates: start: 202201

REACTIONS (11)
  - Gingival injury [Not Recovered/Not Resolved]
  - Palate injury [Not Recovered/Not Resolved]
  - Tongue injury [Not Recovered/Not Resolved]
  - Oral contusion [Not Recovered/Not Resolved]
  - Oral contusion [Not Recovered/Not Resolved]
  - Oral contusion [Not Recovered/Not Resolved]
  - Glossodynia [Not Recovered/Not Resolved]
  - Lip erythema [Not Recovered/Not Resolved]
  - Oral mucosal blistering [Recovered/Resolved]
  - Diarrhoea [Not Recovered/Not Resolved]
  - Skin exfoliation [Not Recovered/Not Resolved]

NARRATIVE: CASE EVENT DATE: 20220805
